FAERS Safety Report 9383878 (Version 2)
Quarter: 2013Q3

REPORT INFORMATION
  Report Type: Report from Study
  Country: US (occurrence: US)
  Receive Date: 20130704
  Receipt Date: 20130709
  Transmission Date: 20140515
  Serious: Yes (Other)
  Sender: FDA-Public Use
  Company Number: US-ROCHE-1244661

PATIENT
  Age: 53 Year
  Sex: Male

DRUGS (6)
  1. CELLCEPT [Suspect]
     Indication: PRODUCT USED FOR UNKNOWN INDICATION
     Route: 065
  2. LIPITOR [Concomitant]
  3. ASA [Concomitant]
  4. ALLOPURINOL [Concomitant]
  5. CALCITRIOL [Concomitant]
  6. LISINOPRIL [Concomitant]

REACTIONS (3)
  - Transient ischaemic attack [Unknown]
  - Cerebrovascular accident [Unknown]
  - Memory impairment [Unknown]
